FAERS Safety Report 15306061 (Version 1)
Quarter: 2018Q3

REPORT INFORMATION
  Report Type: Spontaneous
  Country: US (occurrence: US)
  Receive Date: 20180810
  Receipt Date: 20180810
  Transmission Date: 20181010
  Serious: No
  Sender: FDA-Public Use
  Company Number: None

PATIENT
  Age: 38 Year
  Sex: Female

DRUGS (1)
  1. PROGESTERONE IN OIL [Suspect]
     Active Substance: PROGESTERONE
     Indication: PREGNANCY
     Route: 030
     Dates: start: 20180701, end: 20180810

REACTIONS (5)
  - Liquid product physical issue [None]
  - Pruritus [None]
  - Drug administration error [None]
  - Product container seal issue [None]
  - Product quality issue [None]

NARRATIVE: CASE EVENT DATE: 20180804
